FAERS Safety Report 5531796-3 (Version None)
Quarter: 2007Q4

REPORT INFORMATION
  Report Type: 
  Country: None (occurrence: None)
  Receive Date: 20071203
  Receipt Date: 20071126
  Transmission Date: 20080405
  Serious: Yes (Death, Life-Threatening, Hospitalization)
  Sender: FDA-Public Use
  Company Number: JP-BAYER-200710784BYL

PATIENT
  Age: 53 Year
  Sex: Male
  Weight: 60 kg

DRUGS (45)
  1. ASPIRIN [Suspect]
     Indication: STENT PLACEMENT
     Dosage: TOTAL DAILY DOSE: 100 MG  UNIT DOSE: 100 MG
     Route: 048
     Dates: start: 20070922, end: 20071018
  2. MINOMYCIN [Suspect]
     Route: 065
     Dates: start: 20070928, end: 20071014
  3. PANALDINE [Suspect]
     Indication: STENT PLACEMENT
     Route: 048
     Dates: start: 20070922, end: 20071018
  4. OMEPRAL [Suspect]
     Route: 042
     Dates: start: 20070924, end: 20071009
  5. OMEPRAL [Suspect]
     Dosage: TOTAL DAILY DOSE: 20 MG  UNIT DOSE: 20 MG
     Route: 048
     Dates: start: 20071010, end: 20071018
  6. CARBENIN [Suspect]
     Route: 065
     Dates: start: 20070925, end: 20071015
  7. MEXITIL [Suspect]
     Dosage: TOTAL DAILY DOSE: 300 MG  UNIT DOSE: 100 MG
     Route: 048
     Dates: start: 20071003, end: 20071018
  8. PLETAL [Concomitant]
     Dosage: TOTAL DAILY DOSE: 100 MG  UNIT DOSE: 100 MG
     Route: 048
     Dates: start: 20070922, end: 20070922
  9. ALLOID G [Concomitant]
     Route: 048
     Dates: start: 20070922, end: 20071011
  10. NU-LOTAN [Concomitant]
     Dosage: TOTAL DAILY DOSE: 25 MG  UNIT DOSE: 25 MG
     Route: 048
     Dates: start: 20070922, end: 20070925
  11. SIGMART [Concomitant]
     Dosage: TOTAL DAILY DOSE: 15 MG  UNIT DOSE: 5 MG
     Route: 048
     Dates: start: 20070922
  12. MARZULENE [Concomitant]
     Route: 048
     Dates: start: 20070922
  13. FAMOTIDINE [Concomitant]
     Dosage: TOTAL DAILY DOSE: 40 MG  UNIT DOSE: 20 MG
     Route: 048
     Dates: start: 20070922, end: 20070926
  14. LASIX [Concomitant]
     Dosage: UNIT DOSE: 40 MG
     Route: 048
     Dates: start: 20070922
  15. ALDACTONE [Concomitant]
     Dosage: UNIT DOSE: 25 MG
     Route: 048
     Dates: start: 20070922, end: 20070926
  16. LAC-B [Concomitant]
     Route: 048
     Dates: start: 20071012
  17. LAC-B [Concomitant]
     Route: 048
     Dates: start: 20070928, end: 20071011
  18. PRIMPERAN INJ [Concomitant]
     Route: 048
     Dates: start: 20071010
  19. ALESION [Concomitant]
     Dosage: TOTAL DAILY DOSE: 20 MG  UNIT DOSE: 20 MG
     Route: 048
     Dates: start: 20071016
  20. NIPOLAZIN [Concomitant]
     Dosage: TOTAL DAILY DOSE: 6 MG  UNIT DOSE: 3 MG
     Route: 048
     Dates: start: 20071017
  21. PREDONINE [Concomitant]
     Route: 048
     Dates: start: 20071018
  22. DOPAMINE HCL [Concomitant]
     Route: 065
     Dates: start: 20070922
  23. DOBUTAMINE HCL [Concomitant]
     Route: 048
     Dates: start: 20070922
  24. NOR-ADRENALIN [Concomitant]
     Route: 048
     Dates: start: 20070922
  25. OLIVES K [Concomitant]
     Route: 065
     Dates: start: 20070922, end: 20071004
  26. NOVO HEPARIN [Concomitant]
     Route: 065
     Dates: start: 20070922, end: 20071027
  27. DIPRIVAN [Concomitant]
     Route: 065
     Dates: start: 20070922, end: 20071009
  28. PENTCILLIN [Concomitant]
     Route: 065
     Dates: start: 20070923, end: 20070924
  29. FOY [Concomitant]
     Route: 065
     Dates: start: 20070925, end: 20071006
  30. OMEPRAL [Concomitant]
     Route: 048
     Dates: start: 20070924, end: 20071009
  31. ELASPOL [Concomitant]
     Route: 048
     Dates: start: 20070929, end: 20071006
  32. HANP [Concomitant]
     Route: 065
     Dates: start: 20071004, end: 20071008
  33. INTRALIPID 10% [Concomitant]
     Route: 065
     Dates: start: 20071010, end: 20071015
  34. DORMICUM [Concomitant]
     Route: 048
     Dates: start: 20071006
  35. EPOGEN [Concomitant]
     Dates: start: 20071011
  36. CONCENTRATED RED CELLS [Concomitant]
     Route: 048
     Dates: start: 20070926, end: 20070926
  37. CONCENTRATED RED CELLS [Concomitant]
     Route: 048
     Dates: start: 20071013, end: 20071013
  38. CONCENTRATED RED CELLS [Concomitant]
     Route: 048
     Dates: start: 20070925, end: 20070925
  39. CONCENTRATED RED CELLS [Concomitant]
     Route: 048
     Dates: start: 20070927, end: 20070929
  40. CONCENTRATED RED CELLS [Concomitant]
     Route: 048
     Dates: start: 20071002, end: 20071002
  41. CONCENTRATED RED CELLS [Concomitant]
     Route: 048
     Dates: start: 20071001, end: 20071001
  42. CONCENTRATED RED CELLS [Concomitant]
     Route: 048
     Dates: start: 20070924, end: 20070924
  43. VENOGLOBULIN [Concomitant]
     Route: 065
     Dates: start: 20070926, end: 20070927
  44. VENOGLOBULIN [Concomitant]
     Route: 065
     Dates: start: 20070925, end: 20070925
  45. ALBUMINAR [Concomitant]
     Route: 065
     Dates: start: 20070925, end: 20070925

REACTIONS (8)
  - ANAEMIA [None]
  - BLISTER [None]
  - CHEILITIS [None]
  - CONDITION AGGRAVATED [None]
  - DIALYSIS [None]
  - ERYTHEMA [None]
  - SKIN EXFOLIATION [None]
  - TOXIC EPIDERMAL NECROLYSIS [None]
